FAERS Safety Report 14342160 (Version 1)
Quarter: 2018Q1

REPORT INFORMATION
  Report Type: Spontaneous
  Country: US (occurrence: US)
  Receive Date: 20180102
  Receipt Date: 20180102
  Transmission Date: 20180509
  Serious: No
  Sender: FDA-Public Use
  Company Number: US-TEVA-773731ACC

PATIENT
  Sex: Female

DRUGS (2)
  1. MINOXIDIL. [Suspect]
     Active Substance: MINOXIDIL
     Indication: ALOPECIA
     Dosage: 2 PERCENT DAILY;
     Route: 061
     Dates: end: 2015
  2. MINOXIDIL. [Suspect]
     Active Substance: MINOXIDIL
     Route: 061
     Dates: start: 2015

REACTIONS (4)
  - Drug prescribing error [Unknown]
  - Drug ineffective [Unknown]
  - Pruritus [Not Recovered/Not Resolved]
  - Product use issue [Unknown]
